FAERS Safety Report 7064501-2 (Version None)
Quarter: 2010Q4

REPORT INFORMATION
  Report Type: 
  Country: None (occurrence: None)
  Receive Date: 20101027
  Receipt Date: 20101019
  Transmission Date: 20110411
  Serious: Yes (Death, Other)
  Sender: FDA-Public Use
  Company Number: US-PFIZER INC-2010113557

PATIENT
  Age: 44 Year
  Sex: Female
  Weight: 45.351 kg

DRUGS (12)
  1. CHANTIX [Suspect]
     Indication: TOBACCO USER
     Dosage: 1 MG, DAILY
     Route: 048
     Dates: start: 20090401
  2. OXYCODONE [Concomitant]
     Dosage: UNK
  3. MORPHINE SULFATE [Concomitant]
     Dosage: UNK
  4. CLONAZEPAM [Concomitant]
     Dosage: UNK
  5. LORAZEPAM [Concomitant]
     Dosage: UNK
  6. ABILIFY [Concomitant]
     Dosage: UNK
  7. CYMBALTA [Concomitant]
     Dosage: UNK
  8. RITALIN [Concomitant]
     Dosage: UNK
  9. HYDROXYZINE [Concomitant]
     Dosage: UNK
  10. TRAZODONE [Concomitant]
     Dosage: UNK
  11. BACLOFEN [Concomitant]
     Dosage: UNK
  12. METHYLPHENIDATE [Concomitant]
     Dosage: UNK

REACTIONS (5)
  - ABNORMAL BEHAVIOUR [None]
  - COMPLETED SUICIDE [None]
  - EMOTIONAL DISTRESS [None]
  - INTENTIONAL OVERDOSE [None]
  - MENTAL IMPAIRMENT [None]
